FAERS Safety Report 18483588 (Version 1)
Quarter: 2020Q4

REPORT INFORMATION
  Report Type: Spontaneous
  Country: US (occurrence: US)
  Receive Date: 20201109
  Receipt Date: 20201109
  Transmission Date: 20210114
  Serious: No
  Sender: FDA-Public Use
  Company Number: US-ROCHE-2457575

PATIENT
  Age: 79 Year
  Sex: Female
  Weight: 89.5 kg

DRUGS (2)
  1. ACTIVASE [Suspect]
     Active Substance: ALTEPLASE
     Indication: HAEMOTHORAX
     Dosage: FOR 6 DOSES ;ONGOING: YES
     Route: 034
     Dates: start: 20191026
  2. PULMOZYME [Suspect]
     Active Substance: DORNASE ALFA
     Indication: HAEMOTHORAX
     Dosage: FOR 6 DOSES ;ONGOING: YES
     Route: 034
     Dates: start: 20191026

REACTIONS (3)
  - Pain [Unknown]
  - Off label use [Unknown]
  - Product use in unapproved indication [Unknown]

NARRATIVE: CASE EVENT DATE: 20191026
